FAERS Safety Report 7639062-7 (Version None)
Quarter: 2011Q3

REPORT INFORMATION
  Report Type: 
  Country: None (occurrence: None)
  Receive Date: 20110727
  Receipt Date: 20110725
  Transmission Date: 20111222
  Serious: No
  Sender: FDA-Public Use
  Company Number: US-TEVA-292119USA

PATIENT
  Sex: Female

DRUGS (1)
  1. PROAIR HFA [Suspect]
     Route: 055
     Dates: start: 20110725

REACTIONS (2)
  - HEADACHE [None]
  - SINUS HEADACHE [None]
